FAERS Safety Report 9406581 (Version 2)
Quarter: 2013Q3

REPORT INFORMATION
  Report Type: Spontaneous
  Country: US (occurrence: US)
  Receive Date: 20130718
  Receipt Date: 20130731
  Transmission Date: 20140515
  Serious: Yes (Other)
  Sender: FDA-Public Use
  Company Number: US-AMGEN-USASP2013049703

PATIENT
  Age: 73 Year
  Sex: Male
  Weight: 107.3 kg

DRUGS (2)
  1. XGEVA [Suspect]
     Indication: METASTASES TO BONE
     Dosage: 120 MG, Q4WK
     Route: 058
     Dates: start: 20121126, end: 20130610
  2. CALCIUM WITH VITAMIN D             /00944201/ [Concomitant]

REACTIONS (3)
  - Fibula fracture [Unknown]
  - Fall [Unknown]
  - Ankle fracture [Not Recovered/Not Resolved]
